FAERS Safety Report 16804966 (Version 9)
Quarter: 2022Q1

REPORT INFORMATION
  Report Type: Spontaneous
  Country: GB (occurrence: GB)
  Receive Date: 20190913
  Receipt Date: 20220309
  Transmission Date: 20220424
  Serious: Yes (Death, Congenital Anomaly, Other)
  Sender: FDA-Public Use
  Company Number: PHHY2019GB210231

PATIENT
  Age: 4 Day
  Sex: Male
  Weight: 2.855 kg

DRUGS (30)
  1. ABACAVIR\LAMIVUDINE [Suspect]
     Active Substance: ABACAVIR\LAMIVUDINE
     Indication: Foetal exposure during pregnancy
     Dosage: 1 DOSAGE FORM, QD (1 DOSAGE FORM, QD (TABLET)/ 600 MG/ 300 MG), 1ST TRIMESTER)
     Route: 064
  2. NEVIRAPINE [Suspect]
     Active Substance: NEVIRAPINE
     Indication: Foetal exposure during pregnancy
     Dosage: UNK (400 MG, QD)
     Route: 064
  3. NIFEDIPINE [Suspect]
     Active Substance: NIFEDIPINE
     Indication: Foetal exposure during pregnancy
     Dosage: UNK
     Route: 064
  4. NIFEDIPINE [Suspect]
     Active Substance: NIFEDIPINE
     Dosage: UNK, (1 TRIMESTER)
     Route: 064
  5. NIFEDIPINE [Suspect]
     Active Substance: NIFEDIPINE
     Dosage: UNK, (1 TRIMESTER)
     Route: 064
  6. NIFEDIPINE [Suspect]
     Active Substance: NIFEDIPINE
     Dosage: UNK, (1 TRIMESTER)
     Route: 064
  7. CHOLECALCIFEROL [Suspect]
     Active Substance: CHOLECALCIFEROL
     Indication: Foetal exposure during pregnancy
     Dosage: UNK
     Route: 064
  8. CHOLECALCIFEROL [Suspect]
     Active Substance: CHOLECALCIFEROL
     Dosage: UNK, (1 TRIMESTER)
     Route: 064
  9. ABACAVIR [Suspect]
     Active Substance: ABACAVIR
     Indication: Foetal exposure during pregnancy
     Dosage: MATERNAL DOSE: UNK, QD
     Route: 064
  10. ABACAVIR [Suspect]
     Active Substance: ABACAVIR
     Dosage: MATERNAL DOSE: 400 DOSAGE FORM, QD
     Route: 064
  11. ABACAVIR [Suspect]
     Active Substance: ABACAVIR
     Dosage: MATERNAL DOSE: 1 DOSAGE FORM, QD ((DOSE: 1 TABLET/CAPSULE; STRENGTH: 600MG/ 300 MG)
     Route: 064
  12. ABACAVIR [Suspect]
     Active Substance: ABACAVIR
     Dosage: MATERNAL DOSE: 400 DOSAGE FORM, QD
     Route: 064
  13. ABACAVIR [Suspect]
     Active Substance: ABACAVIR
     Dosage: 400 DOSAGE FORM, QD
     Route: 064
  14. LAMIVUDINE [Suspect]
     Active Substance: LAMIVUDINE
     Indication: Foetal exposure during pregnancy
     Dosage: MATERNAL DOSE: 1 DOSAGE FORM, QD (DOSE: 1 TABLET/CAPSULE; STRENGTH: 600MG/ 300 MG)
     Route: 064
  15. LAMIVUDINE [Suspect]
     Active Substance: LAMIVUDINE
     Dosage: 1 DOSAGE FORM, QD (DOSE: 1 TABLET/CAPSULE; STRENGTH: 600 MG/ 300 MG)
     Route: 064
  16. LAMIVUDINE [Suspect]
     Active Substance: LAMIVUDINE
     Dosage: 1 DOSAGE FORM, QD
     Route: 064
  17. LAMIVUDINE [Suspect]
     Active Substance: LAMIVUDINE
     Dosage: 1 DOSAGE FORM, QD
     Route: 064
  18. ASPIRIN [Suspect]
     Active Substance: ASPIRIN
     Indication: Foetal exposure during pregnancy
     Dosage: UNK
     Route: 064
  19. LABETALOL [Suspect]
     Active Substance: LABETALOL\LABETALOL HYDROCHLORIDE
     Indication: Foetal exposure during pregnancy
     Dosage: UNK
     Route: 064
  20. LABETALOL [Suspect]
     Active Substance: LABETALOL\LABETALOL HYDROCHLORIDE
     Dosage: UNK
     Route: 064
  21. LABETALOL [Suspect]
     Active Substance: LABETALOL\LABETALOL HYDROCHLORIDE
     Dosage: 1 DOSAGE FORM (1 TRIMESTER)
     Route: 064
  22. LABETALOL [Suspect]
     Active Substance: LABETALOL\LABETALOL HYDROCHLORIDE
     Dosage: UNK
     Route: 064
  23. ASPIRIN [Suspect]
     Active Substance: ASPIRIN
     Indication: Foetal exposure during pregnancy
     Dosage: UNK
     Route: 064
  24. ASPIRIN [Suspect]
     Active Substance: ASPIRIN
     Dosage: UNK, (1 TRIMESTER)
     Route: 064
  25. ASPIRIN [Suspect]
     Active Substance: ASPIRIN
     Dosage: UNK, (1 TRIMESTER)
     Route: 064
  26. VITAMIN D [Suspect]
     Active Substance: VITAMIN D NOS
     Indication: Foetal exposure during pregnancy
     Dosage: UNK
     Route: 064
  27. VIRAMUNE [Suspect]
     Active Substance: NEVIRAPINE
     Indication: Foetal exposure during pregnancy
     Dosage: 400 MILLIGRAM, QD (1 TRIMESTER))
     Route: 064
  28. VIRAMUNE [Suspect]
     Active Substance: NEVIRAPINE
     Dosage: UNK
     Route: 064
  29. VIRAMUNE [Suspect]
     Active Substance: NEVIRAPINE
     Dosage: 400 MILLIGRAM, QD (1 TRIMESTER))
     Route: 064
  30. COMBIVIR [Suspect]
     Active Substance: LAMIVUDINE\ZIDOVUDINE
     Indication: Foetal exposure during pregnancy
     Dosage: 900 MILLIGRAM, QD
     Route: 064

REACTIONS (14)
  - Congenital central nervous system anomaly [Fatal]
  - Death [Fatal]
  - Macrocephaly [Fatal]
  - Atrioventricular septal defect [Fatal]
  - Neurodevelopmental disorder [Fatal]
  - Ataxia [Fatal]
  - Dandy-Walker syndrome [Fatal]
  - Speech disorder developmental [Fatal]
  - Trisomy 21 [Fatal]
  - Pulmonary hypertension [Fatal]
  - Gene mutation [Fatal]
  - Attention deficit hyperactivity disorder [Fatal]
  - Polydactyly [Fatal]
  - Foetal exposure during pregnancy [Unknown]

NARRATIVE: CASE EVENT DATE: 20190816
